FAERS Safety Report 13743567 (Version 1)
Quarter: 2017Q3

REPORT INFORMATION
  Report Type: Spontaneous
  Country: US (occurrence: US)
  Receive Date: 20170711
  Receipt Date: 20170711
  Transmission Date: 20171127
  Serious: Yes (Disabling, Congenital Anomaly, Other)
  Sender: FDA-Public Use
  Company Number: US-ABBVIE-01P-163-0111193-00

PATIENT
  Age: 1 Day
  Sex: Male
  Weight: 2.78 kg

DRUGS (1)
  1. DEPAKOTE [Suspect]
     Active Substance: DIVALPROEX SODIUM
     Indication: MATERNAL EXPOSURE TIMING UNSPECIFIED
     Route: 064

REACTIONS (27)
  - Abnormal palmar/plantar creases [Unknown]
  - Congenital hypothyroidism [Unknown]
  - Septo-optic dysplasia [Unknown]
  - Unevaluable event [Unknown]
  - Hypotonia [Unknown]
  - Foetal exposure during pregnancy [Unknown]
  - Congenital oral malformation [Unknown]
  - Autism spectrum disorder [Unknown]
  - Eczema [Unknown]
  - Congenital nose malformation [Unknown]
  - Blindness congenital [Unknown]
  - Skull malformation [Unknown]
  - Developmental delay [Unknown]
  - Limb malformation [Unknown]
  - Hypoglycaemia neonatal [Unknown]
  - Fine motor delay [Unknown]
  - Speech disorder developmental [Unknown]
  - Hypopituitarism [Unknown]
  - Multiple congenital abnormalities [Unknown]
  - Visual impairment [Unknown]
  - Jaundice [Unknown]
  - Foetal anticonvulsant syndrome [Unknown]
  - Septum pellucidum agenesis [Unknown]
  - Gross motor delay [Unknown]
  - Hypertelorism of orbit [Unknown]
  - Prominent epicanthal folds [Unknown]
  - Nipple disorder [Unknown]
